FAERS Safety Report 17162729 (Version 1)
Quarter: 2019Q4

REPORT INFORMATION
  Report Type: Report from Study
  Country: US (occurrence: US)
  Receive Date: 20191217
  Receipt Date: 20191217
  Transmission Date: 20200122
  Serious: Yes (Other)
  Sender: FDA-Public Use
  Company Number: US-TEVA-2019-US-1152614

PATIENT
  Age: 31 Year
  Sex: Female

DRUGS (1)
  1. COPAXONE [Suspect]
     Active Substance: GLATIRAMER ACETATE
     Dates: start: 20190311

REACTIONS (13)
  - Erythema [Recovered/Resolved]
  - Palpitations [Recovered/Resolved]
  - Urticaria [Recovered/Resolved]
  - Immediate post-injection reaction [Unknown]
  - Rash erythematous [Recovered/Resolved]
  - Injection site swelling [Unknown]
  - Anaphylactic reaction [Unknown]
  - Cyanosis [Recovered/Resolved]
  - Injection site reaction [Unknown]
  - Injection site urticaria [Unknown]
  - Vomiting [Recovered/Resolved]
  - Throat tightness [Recovered/Resolved]
  - Muscular weakness [Unknown]

NARRATIVE: CASE EVENT DATE: 2019
